FAERS Safety Report 15064070 (Version 1)
Quarter: 2018Q2

REPORT INFORMATION
  Report Type: Spontaneous
  Country: US (occurrence: US)
  Receive Date: 20180625
  Receipt Date: 20180625
  Transmission Date: 20180711
  Serious: No
  Sender: FDA-Public Use
  Company Number: US-AMGEN-USASP2016059716

PATIENT
  Age: 70 Year
  Sex: Male
  Weight: 85.71 kg

DRUGS (1)
  1. REPATHA [Suspect]
     Active Substance: EVOLOCUMAB
     Indication: HYPERCHOLESTEROLAEMIA
     Dosage: 140 MG, Q2WK
     Route: 065
     Dates: start: 20151222, end: 201603

REACTIONS (6)
  - Gait disturbance [Unknown]
  - Myalgia [Unknown]
  - Muscular weakness [Unknown]
  - Muscle spasms [Unknown]
  - Mobility decreased [Unknown]
  - Injection site pain [Unknown]
